FAERS Safety Report 20517717 (Version 1)
Quarter: 2022Q1

REPORT INFORMATION
  Report Type: Spontaneous
  Country: US (occurrence: US)
  Receive Date: 20220225
  Receipt Date: 20220225
  Transmission Date: 20220423
  Serious: Yes (Death, Other)
  Sender: FDA-Public Use
  Company Number: US-SA-SAC20220224000059

PATIENT
  Age: 75 Year
  Sex: Female

DRUGS (1)
  1. GOLD BOND ORIGINAL STRENGTH POWDER [Suspect]
     Active Substance: MENTHOL\ZINC OXIDE
     Dosage: UNK

REACTIONS (3)
  - Mesothelioma [Fatal]
  - Pain [Unknown]
  - Anxiety [Unknown]

NARRATIVE: CASE EVENT DATE: 20210526
